FAERS Safety Report 9149125 (Version 2)
Quarter: 2013Q1

REPORT INFORMATION
  Report Type: Spontaneous
  Country: FR (occurrence: FR)
  Receive Date: 20130308
  Receipt Date: 20130329
  Transmission Date: 20140127
  Serious: Yes (Other)
  Sender: FDA-Public Use
  Company Number: FR-MERCK-1303FRA000851

PATIENT
  Age: 62 Year
  Sex: Male
  Weight: 92 kg

DRUGS (7)
  1. JANUVIA [Suspect]
     Indication: TYPE 2 DIABETES MELLITUS
     Dosage: 100 MG, QD
     Route: 048
     Dates: start: 20121110, end: 20130111
  2. LODOZ [Concomitant]
     Indication: ACUTE CORONARY SYNDROME
     Dosage: 1 DF, QD
     Route: 048
     Dates: start: 2006
  3. COVERSYL (PERINDOPRIL ARGININE) [Concomitant]
     Indication: ACUTE CORONARY SYNDROME
     Dosage: 1 DF, QD
     Route: 048
     Dates: start: 2006
  4. PRAVADUAL [Concomitant]
     Indication: ACUTE CORONARY SYNDROME
     Dosage: 1 DF, QD
     Route: 048
     Dates: start: 2006
  5. DAONIL [Concomitant]
     Indication: TYPE 2 DIABETES MELLITUS
     Dosage: 1 DF, TID
     Route: 048
     Dates: start: 1997
  6. METFORMIN [Concomitant]
     Indication: TYPE 2 DIABETES MELLITUS
     Dosage: 1 DF, TID
     Route: 048
     Dates: start: 1997
  7. NOCTAMID [Concomitant]
     Indication: SLEEP DISORDER
     Dosage: 1 DF, QD
     Dates: start: 2010

REACTIONS (1)
  - Oedematous pancreatitis [Recovered/Resolved]
